FAERS Safety Report 8058362-2 (Version None)
Quarter: 2012Q1

REPORT INFORMATION
  Report Type: 
  Country: None (occurrence: None)
  Receive Date: 20120120
  Receipt Date: 20120110
  Transmission Date: 20120608
  Serious: Yes (Other)
  Sender: FDA-Public Use
  Company Number: US-BAYER-2011-081847

PATIENT
  Age: 18 Year
  Sex: Female
  Weight: 53 kg

DRUGS (4)
  1. YAZ [Suspect]
     Indication: ACNE
  2. CLARITIN [Concomitant]
     Dosage: 1 DAILY
     Route: 048
  3. LOESTRIN FE 1/20 [Concomitant]
     Dosage: UNK
     Dates: start: 20091117
  4. YAZ [Suspect]
     Indication: CONTRACEPTION
     Dosage: UNK
     Dates: start: 20080801, end: 20091101

REACTIONS (4)
  - BILIARY DYSKINESIA [None]
  - GALLBLADDER DISORDER [None]
  - INJURY [None]
  - PAIN [None]
